FAERS Safety Report 5232209-1 (Version None)
Quarter: 2007Q1

REPORT INFORMATION
  Report Type: 
  Country: None (occurrence: None)
  Receive Date: 20070205
  Receipt Date: 20070123
  Transmission Date: 20070707
  Serious: Yes (Other)
  Sender: FDA-Public Use
  Company Number: 060001K07USA

PATIENT
  Age: 31 Year
  Sex: Male

DRUGS (1)
  1. SEROPHENE [Suspect]
     Indication: OFF LABEL USE
     Dosage: 25 MG, 1 IN 1 DAYS

REACTIONS (1)
  - RETINAL TEAR [None]
